FAERS Safety Report 4508892-2 (Version None)
Quarter: 2004Q4

REPORT INFORMATION
  Report Type: 
  Country: None (occurrence: None)
  Receive Date: 20041122
  Receipt Date: 20041122
  Transmission Date: 20050328
  Serious: Yes (Other)
  Sender: FDA-Public Use
  Company Number: None

PATIENT
  Sex: Male
  Weight: 57 kg

DRUGS (3)
  1. ACCUTANE [Suspect]
     Dosage: 25  DAILY ORAL
     Route: 048
     Dates: start: 20040919, end: 20041012
  2. ACCUTANE [Suspect]
     Dosage: 35  DAILY ORAL
     Route: 048
     Dates: start: 20041012, end: 20041019
  3. ZOLOFT [Concomitant]

REACTIONS (4)
  - EPISTAXIS [None]
  - LIP DRY [None]
  - MYOPIA [None]
  - VISUAL ACUITY REDUCED [None]
